FAERS Safety Report 13379060 (Version 1)
Quarter: 2017Q1

REPORT INFORMATION
  Report Type: Spontaneous
  Country: US (occurrence: US)
  Receive Date: 20170328
  Receipt Date: 20170328
  Transmission Date: 20170429
  Serious: No
  Sender: FDA-Public Use
  Company Number: US-ROCHE-GNE314306

PATIENT
  Age: 17 Year
  Sex: Male
  Weight: 76.27 kg

DRUGS (1)
  1. XOLAIR [Suspect]
     Active Substance: OMALIZUMAB
     Indication: ASTHMA
     Dosage: 375 UNK, Q2M
     Route: 058
     Dates: start: 20060612, end: 20110127

REACTIONS (2)
  - Oppositional defiant disorder [None]
  - Intentional overdose [Recovered/Resolved]

NARRATIVE: CASE EVENT DATE: 20101028
